FAERS Safety Report 14033908 (Version 1)
Quarter: 2017Q4

REPORT INFORMATION
  Report Type: Spontaneous
  Country: KR (occurrence: KR)
  Receive Date: 20171003
  Receipt Date: 20171003
  Transmission Date: 20180321
  Serious: Yes (Hospitalization)
  Sender: FDA-Public Use
  Company Number: KR-MYLANLABS-2017M1061075

PATIENT
  Age: 65 Year
  Sex: Male

DRUGS (1)
  1. FENTANYL. [Suspect]
     Active Substance: FENTANYL
     Indication: PRODUCT USED FOR UNKNOWN INDICATION
     Dosage: 10 PATCHES AT ONE TIME
     Route: 065

REACTIONS (4)
  - Hypoxia [Unknown]
  - Depressed level of consciousness [Recovered/Resolved]
  - Leukoencephalopathy [Not Recovered/Not Resolved]
  - Overdose [Not Recovered/Not Resolved]
